FAERS Safety Report 22173286 (Version 2)
Quarter: 2023Q2

REPORT INFORMATION
  Report Type: Report from Study
  Country: US (occurrence: US)
  Receive Date: 20230404
  Receipt Date: 20230627
  Transmission Date: 20230722
  Serious: Yes (Hospitalization, Other)
  Sender: FDA-Public Use
  Company Number: US-MYLANLABS-2022M1138275

PATIENT
  Sex: Female
  Weight: 52.17 kg

DRUGS (1)
  1. GLATIRAMER ACETATE [Suspect]
     Active Substance: GLATIRAMER ACETATE
     Indication: Multiple sclerosis
     Dosage: 40 MILLIGRAM, 3XW
     Route: 030

REACTIONS (6)
  - Multiple sclerosis relapse [Unknown]
  - Pruritus [Unknown]
  - Rash [Unknown]
  - Device use issue [Unknown]
  - Incorrect route of product administration [Unknown]
  - Therapy cessation [Unknown]
